FAERS Safety Report 12141043 (Version 4)
Quarter: 2016Q1

REPORT INFORMATION
  Report Type: Spontaneous
  Country: US (occurrence: US)
  Receive Date: 20160303
  Receipt Date: 20160325
  Transmission Date: 20160526
  Serious: Yes (Hospitalization)
  Sender: FDA-Public Use
  Company Number: US-PFIZER INC-2016085256

PATIENT
  Age: 8 Month
  Sex: Male

DRUGS (2)
  1. RAPAMUNE [Suspect]
     Active Substance: SIROLIMUS
     Indication: HAEMANGIOMA-THROMBOCYTOPENIA SYNDROME
     Dosage: 0.4 MG, 2X/DAY
     Route: 048
     Dates: start: 20151210
  2. AMOXICILLIN. [Concomitant]
     Active Substance: AMOXICILLIN
     Dosage: 3 ML, UNK

REACTIONS (6)
  - Vomiting [Not Recovered/Not Resolved]
  - Liver function test abnormal [Unknown]
  - Full blood count decreased [Recovered/Resolved]
  - Weight decreased [Unknown]
  - Pneumonia [Recovering/Resolving]
  - Off label use [Unknown]

NARRATIVE: CASE EVENT DATE: 20151213
